FAERS Safety Report 8916807 (Version 3)
Quarter: 2013Q1

REPORT INFORMATION
  Report Type: Report from Study
  Country: US (occurrence: US)
  Receive Date: 20121120
  Receipt Date: 20130213
  Transmission Date: 20140127
  Serious: Yes (Hospitalization)
  Sender: FDA-Public Use
  Company Number: US-VERTEX PHARMACEUTICAL INC.-2012-024758

PATIENT
  Sex: Male
  Weight: 90 kg

DRUGS (5)
  1. VX-950 (TELAPREVIR) [Suspect]
     Indication: HEPATITIS C
     Dosage: 750 MG, TID
     Route: 048
     Dates: start: 20120901, end: 201211
  2. PEGASYS [Suspect]
     Indication: HEPATITIS C
     Dosage: 180 ?G, QW
     Route: 058
     Dates: start: 20120901
  3. RIBAPAK [Suspect]
     Indication: HEPATITIS C
     Dosage: 600 MG, BID
     Dates: start: 20120901
  4. ALPRAZOLAM [Concomitant]
     Dosage: 2 MG, PRN
     Route: 048
  5. CELEXA [Concomitant]
     Dosage: 20 MG, QD

REACTIONS (5)
  - Rash [Recovered/Resolved]
  - White blood cell count decreased [Unknown]
  - Hepatic enzyme increased [Unknown]
  - Alopecia [Unknown]
  - Platelet count decreased [Unknown]
